FAERS Safety Report 14819093 (Version 4)
Quarter: 2018Q3

REPORT INFORMATION
  Report Type: Spontaneous
  Country: ES (occurrence: ES)
  Receive Date: 20180427
  Receipt Date: 20180926
  Transmission Date: 20181010
  Serious: Yes (Hospitalization, Other)
  Sender: FDA-Public Use
  Company Number: ES-SUN PHARMACEUTICAL INDUSTRIES LTD-2018RR-171221

PATIENT
  Age: 23 Year
  Sex: Male

DRUGS (11)
  1. DAUNORUBICIN HYDROCHLORIDE. [Suspect]
     Active Substance: DAUNORUBICIN HYDROCHLORIDE
     Indication: ACUTE LYMPHOCYTIC LEUKAEMIA
     Dosage: INDUCTION TREATMENT ()
     Route: 065
     Dates: start: 20130212
  2. METHOTREXATE SODIUM. [Suspect]
     Active Substance: METHOTREXATE SODIUM
     Dosage: MAINTENANCE TREATMENT, REGIMEN #2, () ; CYCLICAL
     Route: 065
     Dates: start: 20131022
  3. VINCRISTINE SULFATE. [Suspect]
     Active Substance: VINCRISTINE SULFATE
     Indication: ACUTE LYMPHOCYTIC LEUKAEMIA
     Dosage: INDUCTION TREATMENT ()
     Route: 065
     Dates: start: 20130212
  4. ARA?C [Suspect]
     Active Substance: CYTARABINE
     Indication: ACUTE LYMPHOCYTIC LEUKAEMIA
     Dosage: CONSOLIDATION TREATMENT, REGIMEN #1, AT HIGH DOSE () ; CYCLICAL
     Route: 065
     Dates: start: 20130325, end: 20130725
  5. IMATINIB [Suspect]
     Active Substance: IMATINIB
     Indication: ACUTE LYMPHOCYTIC LEUKAEMIA
     Dosage: MAINTENANCE TREATMENT, REGIMEN #3
     Route: 065
     Dates: start: 20131022
  6. IMATINIB [Suspect]
     Active Substance: IMATINIB
     Dosage: CONSOLIDATION TREATMENT, REGIMEN #2
     Route: 065
     Dates: start: 20130325, end: 20130725
  7. GENOXAL [Suspect]
     Active Substance: CYCLOPHOSPHAMIDE
     Indication: ACUTE LYMPHOCYTIC LEUKAEMIA
     Dosage: REGIMEN #1, CONDITIONING REGIMEN () ; CYCLICAL
     Route: 065
     Dates: start: 20130823
  8. PREDNISONE. [Suspect]
     Active Substance: PREDNISONE
     Indication: ACUTE LYMPHOCYTIC LEUKAEMIA
     Dosage: INDUCTION TREATMENT, REGIMEN #1, () ; CYCLICAL
     Route: 065
     Dates: start: 20130212
  9. IMATINIB [Suspect]
     Active Substance: IMATINIB
     Dosage: INDUCTION TREATMENT REGIMEN #1
     Route: 065
     Dates: start: 20130212
  10. MERCAPTOPURINE. [Suspect]
     Active Substance: MERCAPTOPURINE
     Indication: ACUTE LYMPHOCYTIC LEUKAEMIA
     Dosage: MAINTENANCE TREATMENT, REGIMEN #1, () ; CYCLICAL
     Route: 065
     Dates: start: 20131022
  11. METHOTREXATE SODIUM. [Suspect]
     Active Substance: METHOTREXATE SODIUM
     Indication: ACUTE LYMPHOCYTIC LEUKAEMIA
     Dosage: CONSOLIDATION TREATMENT, REGIMEN #1, AT HIGH DOSE () ; CYCLICAL
     Route: 065
     Dates: start: 20130325, end: 20130725

REACTIONS (3)
  - Musculoskeletal chest pain [Unknown]
  - Acute lymphocytic leukaemia recurrent [Unknown]
  - Pyrexia [Unknown]

NARRATIVE: CASE EVENT DATE: 20140415
